FAERS Safety Report 8135930-0 (Version None)
Quarter: 2012Q1

REPORT INFORMATION
  Report Type: 
  Country: None (occurrence: None)
  Receive Date: 20120214
  Receipt Date: 20120209
  Transmission Date: 20120608
  Serious: Yes (Hospitalization, Disabling, Other)
  Sender: FDA-Public Use
  Company Number: US-PFIZER INC-2011292215

PATIENT
  Sex: Female

DRUGS (3)
  1. CHANTIX [Suspect]
     Indication: SMOKING CESSATION THERAPY
     Dosage: 1 MG, UNK
     Dates: start: 20080701, end: 20080101
  2. CELEXA [Concomitant]
     Indication: DEPRESSION
     Dosage: UNK
  3. CELEXA [Concomitant]
     Indication: ANGER

REACTIONS (21)
  - SUICIDAL IDEATION [None]
  - COGNITIVE DISORDER [None]
  - MOOD ALTERED [None]
  - HYPERTENSION [None]
  - SPEECH DISORDER [None]
  - MOOD SWINGS [None]
  - CARDIAC DISORDER [None]
  - MENTAL DISORDER [None]
  - AMNESIA [None]
  - DEPRESSION [None]
  - BLINDNESS [None]
  - ANXIETY [None]
  - MIGRAINE [None]
  - AGGRESSION [None]
  - ANGER [None]
  - CEREBROVASCULAR ACCIDENT [None]
  - HOSTILITY [None]
  - TRANSIENT ISCHAEMIC ATTACK [None]
  - ABNORMAL BEHAVIOUR [None]
  - MOTOR DYSFUNCTION [None]
  - SLEEP DISORDER [None]
